FAERS Safety Report 9084515 (Version 1)
Quarter: 2013Q1

REPORT INFORMATION
  Report Type: Report from Study
  Country: US (occurrence: US)
  Receive Date: 20130131
  Receipt Date: 20130131
  Transmission Date: 20140127
  Serious: No
  Sender: FDA-Public Use
  Company Number: US-ABBOTT-12P-163-0999330-00

PATIENT
  Age: 68 Year
  Sex: Female

DRUGS (12)
  1. HUMIRA [Suspect]
     Indication: CROHN^S DISEASE
     Dosage: LOADING DOSE
     Dates: start: 20121010
  2. CRESTOR [Concomitant]
     Indication: BLOOD CHOLESTEROL INCREASED
     Dosage: DAILY
  3. AMLODIPINE [Concomitant]
     Indication: HYPERTENSION
     Dosage: DAILY
  4. LEVOTHYROXINE [Concomitant]
     Indication: HYPOTHYROIDISM
     Dosage: DAILY
  5. HYDROCODONE [Concomitant]
     Indication: ARTHRITIS
     Dosage: 5-325MG EVERY 6 HOURS
  6. HYDROCODONE [Concomitant]
     Indication: CROHN^S DISEASE
  7. VITAMIN D2 [Concomitant]
     Indication: PRODUCT USED FOR UNKNOWN INDICATION
     Dosage: 125MG/50,000 UNITS WEEKLY
  8. FUROSEMIDE [Concomitant]
     Indication: DIURETIC THERAPY
     Dosage: DAILY
  9. PROAIR INHALER [Concomitant]
     Indication: ASTHMA
     Dosage: 1-2 PUFFS EVERY 4-6 HOURS
  10. KETOROLAC [Concomitant]
     Indication: CATARACT
     Dosage: 1 DROP TO RIGHT EYE TWICE A DAY
  11. KETOROLAC [Concomitant]
     Indication: GLAUCOMA
  12. OVER THE COUNTER EYE DROP [Concomitant]
     Indication: PRODUCT USED FOR UNKNOWN INDICATION

REACTIONS (1)
  - Injection site pain [Recovered/Resolved]
